FAERS Safety Report 24753316 (Version 3)
Quarter: 2025Q1

REPORT INFORMATION
  Report Type: Spontaneous
  Country: CN (occurrence: CN)
  Receive Date: 20241219
  Receipt Date: 20250102
  Transmission Date: 20250409
  Serious: Yes (Hospitalization, Other)
  Sender: ACCORD
  Company Number: CN-Accord-460217

PATIENT
  Age: 33 Year
  Sex: Female
  Weight: 40 kg

DRUGS (2)
  1. HYDROXYCHLOROQUINE [Suspect]
     Active Substance: HYDROXYCHLOROQUINE
     Indication: Systemic lupus erythematosus
     Dosage: APPROXIMATELY 10 MG/(KG/D)
     Route: 048
  2. PREDNISONE ACETATE [Concomitant]
     Active Substance: PREDNISONE ACETATE
     Indication: Systemic lupus erythematosus
     Route: 048

REACTIONS (4)
  - Acquired pigmented retinopathy [Recovering/Resolving]
  - Cystoid macular oedema [Recovering/Resolving]
  - Overdose [Unknown]
  - Retinal depigmentation [Recovering/Resolving]
